FAERS Safety Report 13576342 (Version 1)
Quarter: 2017Q2

REPORT INFORMATION
  Report Type: Spontaneous
  Country: GB (occurrence: GB)
  Receive Date: 20170524
  Receipt Date: 20170524
  Transmission Date: 20170830
  Serious: Yes (Other)
  Sender: FDA-Public Use
  Company Number: GB-TORRENT-00015278

PATIENT
  Age: 14 Year
  Sex: Male
  Weight: 53 kg

DRUGS (3)
  1. LYMECYCLINE [Concomitant]
     Active Substance: LYMECYCLINE
  2. CETIRIZINE [Interacting]
     Active Substance: CETIRIZINE HYDROCHLORIDE
  3. MEDIKINET XL [Suspect]
     Active Substance: METHYLPHENIDATE HYDROCHLORIDE

REACTIONS (2)
  - Drug interaction [Unknown]
  - Palpitations [Not Recovered/Not Resolved]
